FAERS Safety Report 18019832 (Version 1)
Quarter: 2020Q3

REPORT INFORMATION
  Report Type: Spontaneous
  Country: US (occurrence: US)
  Receive Date: 20200713
  Receipt Date: 20200713
  Transmission Date: 20201103
  Serious: Yes (Disabling, Other)
  Sender: FDA-Public Use
  Company Number: None

PATIENT
  Age: 23 Year
  Sex: Female
  Weight: 125.19 kg

DRUGS (7)
  1. NUVIGIL [Concomitant]
     Active Substance: ARMODAFINIL
  2. PROZAC [Concomitant]
     Active Substance: FLUOXETINE HYDROCHLORIDE
  3. VITAMIN D3 [Concomitant]
     Active Substance: CHOLECALCIFEROL
  4. ASSURED ANTIBACTERIAL MOIST WIPES VITAMIN E AND ALOE [Suspect]
     Active Substance: BENZALKONIUM CHLORIDE
  5. VITAMIN B COMPLEX [Concomitant]
     Active Substance: CYANOCOBALAMIN\DEXPANTHENOL\NIACINAMIDE\PYRIDOXINE HYDROCHLORIDE\RIBOFLAVIN 5^-PHOSPHATE SODIUM\THIAMINE HYDROCHLORIDE\VITAMIN B COMPLEX
  6. ALBUTERNOL INHALER [Concomitant]
  7. ASSURED INSTANT HAND SANITIZER [Suspect]
     Active Substance: ALCOHOL

REACTIONS (8)
  - Chills [None]
  - Vision blurred [None]
  - Recalled product administered [None]
  - Nausea [None]
  - Food poisoning [None]
  - Diarrhoea [None]
  - Cystitis [None]
  - Vomiting [None]

NARRATIVE: CASE EVENT DATE: 20200626
